FAERS Safety Report 10100595 (Version 5)
Quarter: 2015Q3

REPORT INFORMATION
  Report Type: Report from Study
  Country: JP (occurrence: JP)
  Receive Date: 20140423
  Receipt Date: 20150706
  Transmission Date: 20151125
  Serious: Yes (Hospitalization, Other)
  Sender: FDA-Public Use
  Company Number: PHHY2014JP049498

PATIENT
  Age: 7 Year
  Sex: Male
  Weight: 17 kg

DRUGS (23)
  1. CERTICAN [Suspect]
     Active Substance: EVEROLIMUS
     Dosage: 1 MG, QD
     Dates: start: 20110706, end: 20110707
  2. PROGRAF [Suspect]
     Active Substance: TACROLIMUS\TACROLIMUS ANHYDROUS
     Dosage: 6 MG, QD
     Route: 048
     Dates: start: 20110404, end: 201104
  3. VALIXA [Concomitant]
     Active Substance: VALGANCICLOVIR
     Indication: PROPHYLAXIS
     Dosage: 450 MG, UNK
     Route: 048
     Dates: start: 20110411
  4. CERTICAN [Suspect]
     Active Substance: EVEROLIMUS
     Dosage: 1.25 MG, QD
     Route: 048
     Dates: start: 20110609, end: 20110630
  5. PROGRAF [Suspect]
     Active Substance: TACROLIMUS\TACROLIMUS ANHYDROUS
     Dosage: 6 MG, QD
     Route: 048
     Dates: start: 20110610, end: 20110628
  6. RENIVACE [Concomitant]
     Active Substance: ENALAPRIL
     Dosage: 3.5 MG, UNK
     Route: 048
     Dates: start: 20110703
  7. CERTICAN [Suspect]
     Active Substance: EVEROLIMUS
     Dosage: 1.75 MG, QD
     Route: 048
     Dates: start: 20110701, end: 20110705
  8. PROGRAF [Suspect]
     Active Substance: TACROLIMUS\TACROLIMUS ANHYDROUS
     Dosage: 4 MG, QD
     Route: 048
     Dates: start: 20110526, end: 20110526
  9. PROGRAF [Suspect]
     Active Substance: TACROLIMUS\TACROLIMUS ANHYDROUS
     Dosage: 8 MG, QD
     Route: 048
     Dates: start: 20110602, end: 20110609
  10. CERTICAN [Suspect]
     Active Substance: EVEROLIMUS
     Dosage: 0.25 MG, QD
     Route: 048
     Dates: start: 201104, end: 20110518
  11. PROGRAF [Suspect]
     Active Substance: TACROLIMUS\TACROLIMUS ANHYDROUS
     Dosage: 5 MG, QD
     Route: 048
     Dates: start: 201104, end: 20110525
  12. MYCOPHENOLATE MOFETIL. [Concomitant]
     Active Substance: MYCOPHENOLATE MOFETIL
     Indication: PRODUCT USED FOR UNKNOWN INDICATION
     Dosage: 1000 MG, UNK
     Route: 048
     Dates: start: 20110703
  13. PROGRAF [Suspect]
     Active Substance: TACROLIMUS\TACROLIMUS ANHYDROUS
     Dosage: 5 MG, QD
     Route: 048
     Dates: start: 20110527, end: 20110530
  14. RENIVACE [Concomitant]
     Active Substance: ENALAPRIL
     Indication: HYPERTENSION
     Dosage: 3.5 MG, UNK
     Route: 048
     Dates: start: 20101230
  15. CERTICAN [Suspect]
     Active Substance: EVEROLIMUS
     Indication: HEART TRANSPLANT
     Dosage: 0.5 MG, QD
     Route: 048
     Dates: start: 20110404, end: 201104
  16. CERTICAN [Suspect]
     Active Substance: EVEROLIMUS
     Dosage: 0.5 MG, QD
     Route: 048
     Dates: start: 20110519, end: 20110530
  17. PROGRAF [Suspect]
     Active Substance: TACROLIMUS\TACROLIMUS ANHYDROUS
     Indication: HEART TRANSPLANT
     Dosage: 5 MG, QD
     Route: 048
     Dates: start: 20110111, end: 20110403
  18. CELLCEPT [Concomitant]
     Active Substance: MYCOPHENOLATE MOFETIL\MYCOPHENOLATE MOFETIL HYDROCHLORIDE
     Indication: HEART TRANSPLANT
     Dosage: 1000 MG, UNK
     Route: 048
     Dates: start: 20110625
  19. CERTICAN [Suspect]
     Active Substance: EVEROLIMUS
     Dosage: 0.75 MG, QD
     Route: 048
     Dates: start: 20110531, end: 20110601
  20. CERTICAN [Suspect]
     Active Substance: EVEROLIMUS
     Dosage: 1 MG, QD
     Route: 048
     Dates: start: 20110602, end: 20110608
  21. NEORAL [Suspect]
     Active Substance: CYCLOSPORINE
     Indication: HEART TRANSPLANT
     Dosage: 150 MG, QD
     Route: 048
     Dates: start: 20110706, end: 20110707
  22. PROGRAF [Suspect]
     Active Substance: TACROLIMUS\TACROLIMUS ANHYDROUS
     Dosage: 6 MG, QD
     Route: 048
     Dates: start: 20110531, end: 20110601
  23. VALIXA [Concomitant]
     Active Substance: VALGANCICLOVIR
     Dosage: 450 MG, UNK
     Route: 048
     Dates: start: 20110703

REACTIONS (23)
  - Diarrhoea [Unknown]
  - Alanine aminotransferase increased [Unknown]
  - Blood albumin decreased [Unknown]
  - Red blood cell count increased [Unknown]
  - Haemoglobin decreased [Unknown]
  - Gamma-glutamyltransferase increased [Unknown]
  - Lymphadenopathy [Recovered/Resolved]
  - Pyrexia [Unknown]
  - Blood glucose decreased [Unknown]
  - Blood alkaline phosphatase increased [Unknown]
  - Aspartate aminotransferase increased [Unknown]
  - White blood cell count decreased [Unknown]
  - Intestinal mass [Unknown]
  - Haematocrit decreased [Unknown]
  - Blood creatine phosphokinase decreased [Unknown]
  - Blood pressure decreased [Unknown]
  - Blood urea decreased [Unknown]
  - Blood lactate dehydrogenase increased [Unknown]
  - Blood triglycerides increased [Unknown]
  - Post transplant lymphoproliferative disorder [Recovering/Resolving]
  - Clostridium difficile colitis [Recovering/Resolving]
  - Eosinophil count decreased [Unknown]
  - C-reactive protein increased [Unknown]

NARRATIVE: CASE EVENT DATE: 201104
